FAERS Safety Report 7783617-6 (Version None)
Quarter: 2011Q3

REPORT INFORMATION
  Report Type: 
  Country: None (occurrence: None)
  Receive Date: 20110928
  Receipt Date: 20101015
  Transmission Date: 20111222
  Serious: No
  Sender: FDA-Public Use
  Company Number: US-MYLANLABS-2010S1018000

PATIENT
  Age: 85 Year
  Sex: Male

DRUGS (1)
  1. NITRGLYCERIN TRANSDERMAL SYSTEM [Suspect]
     Indication: CARDIAC DISORDER
     Dosage: CHANGED Q24H
     Route: 062

REACTIONS (2)
  - APPLICATION SITE PAIN [None]
  - APPLICATION SITE ERYTHEMA [None]
